FAERS Safety Report 10717695 (Version 3)
Quarter: 2015Q4

REPORT INFORMATION
  Report Type: Report from Study
  Country: US (occurrence: US)
  Receive Date: 20150116
  Receipt Date: 20151221
  Transmission Date: 20160304
  Serious: Yes (Other)
  Sender: FDA-Public Use
  Company Number: US-PFIZER INC-2015019638

PATIENT
  Age: 60 Year
  Sex: Female

DRUGS (3)
  1. ENBREL [Suspect]
     Active Substance: ETANERCEPT
     Indication: PSORIATIC ARTHROPATHY
     Dosage: 50 MG, QWK
     Route: 065
     Dates: start: 20140703
  2. ENBREL [Suspect]
     Active Substance: ETANERCEPT
     Indication: PSORIASIS
  3. IBUPROFEN. [Suspect]
     Active Substance: IBUPROFEN
     Dosage: 3000 MG, DAILY
     Route: 065

REACTIONS (20)
  - Chest discomfort [Recovered/Resolved]
  - Dysphonia [Not Recovered/Not Resolved]
  - Joint injury [Unknown]
  - Psoriasis [Unknown]
  - Pharyngitis streptococcal [Unknown]
  - Intervertebral disc protrusion [Not Recovered/Not Resolved]
  - Cough [Recovered/Resolved]
  - Nasal congestion [Not Recovered/Not Resolved]
  - Bleeding time prolonged [Unknown]
  - Pain in extremity [Unknown]
  - Psoriatic arthropathy [Not Recovered/Not Resolved]
  - Traumatic haemorrhage [Unknown]
  - Leukopenia [Unknown]
  - Haematochezia [Recovered/Resolved]
  - Mobility decreased [Recovered/Resolved]
  - Musculoskeletal stiffness [Recovered/Resolved]
  - Pain [Not Recovered/Not Resolved]
  - Diarrhoea [Recovered/Resolved]
  - Back pain [Unknown]
  - Back disorder [Recovered/Resolved]

NARRATIVE: CASE EVENT DATE: 201408
